FAERS Safety Report 6393188-7 (Version None)
Quarter: 2009Q4

REPORT INFORMATION
  Report Type: 
  Country: None (occurrence: None)
  Receive Date: 20091008
  Receipt Date: 20090928
  Transmission Date: 20100525
  Serious: Yes (Hospitalization)
  Sender: FDA-Public Use
  Company Number: US-ALEXION-A200900803

PATIENT
  Sex: Female

DRUGS (9)
  1. SOLIRIS [Suspect]
     Dosage: UNK
     Route: 042
     Dates: start: 20090301
  2. SOLIRIS [Suspect]
     Dosage: 900 MG, Q 2 W
     Route: 042
     Dates: start: 20090301
  3. VANCOMYCIN [Concomitant]
     Dosage: UNK
     Dates: start: 20090801
  4. PIPERACILLIN SODIUM AND TAZOBACTAM SODIUM [Concomitant]
     Dosage: UNK
     Dates: start: 20090801
  5. VORICONAZOLE [Concomitant]
     Dosage: UNK
     Dates: start: 20090801
  6. NEUPOGEN [Concomitant]
     Dosage: UNK
     Dates: start: 20090813, end: 20090822
  7. VITAMIN K                          /00854101/ [Concomitant]
     Dosage: UNK
     Dates: start: 20090801
  8. METOPROLOL [Concomitant]
     Dosage: UNK
     Dates: start: 20090801
  9. ATG                                /00575401/ [Suspect]

REACTIONS (1)
  - PNEUMONIA FUNGAL [None]
